FAERS Safety Report 15496070 (Version 1)
Quarter: 2018Q4

REPORT INFORMATION
  Report Type: Report from Study
  Country: AR (occurrence: AR)
  Receive Date: 20181012
  Receipt Date: 20181012
  Transmission Date: 20190205
  Serious: Yes (Other)
  Sender: FDA-Public Use
  Company Number: PHHY2017AR172947

PATIENT
  Sex: Female

DRUGS (5)
  1. ENTRESTO [Suspect]
     Active Substance: SACUBITRIL\VALSARTAN
     Indication: CARDIAC FAILURE CHRONIC
     Dosage: 0.25 DF (100 MG), Q12H
     Route: 065
     Dates: start: 201611
  2. LEVOTHYROXINE. [Concomitant]
     Active Substance: LEVOTHYROXINE
     Indication: PRODUCT USED FOR UNKNOWN INDICATION
     Route: 065
  3. METFORMIN [Concomitant]
     Active Substance: METFORMIN HYDROCHLORIDE
     Indication: PRODUCT USED FOR UNKNOWN INDICATION
     Route: 065
  4. ENTRESTO [Suspect]
     Active Substance: SACUBITRIL\VALSARTAN
     Dosage: 0.5 DF (100 MG), QD
     Route: 065
  5. CRESTOR [Concomitant]
     Active Substance: ROSUVASTATIN CALCIUM
     Indication: PRODUCT USED FOR UNKNOWN INDICATION
     Route: 065

REACTIONS (10)
  - Headache [Not Recovered/Not Resolved]
  - Prescribed underdose [Unknown]
  - Venous occlusion [Not Recovered/Not Resolved]
  - Nervousness [Recovered/Resolved]
  - Cardiac failure chronic [Unknown]
  - Vein disorder [Recovered/Resolved]
  - Haemorrhage [Recovered/Resolved]
  - Wrong technique in product usage process [Unknown]
  - Product prescribing error [Unknown]
  - Amnesia [Not Recovered/Not Resolved]
